FAERS Safety Report 20726495 (Version 1)
Quarter: 2022Q2

REPORT INFORMATION
  Report Type: Report from Study
  Country: JP (occurrence: JP)
  Receive Date: 20220419
  Receipt Date: 20220419
  Transmission Date: 20220721
  Serious: Yes (Death, Hospitalization)
  Sender: FDA-Public Use
  Company Number: JP-TEVA-2022-JP-2028165

PATIENT
  Age: 84 Year
  Sex: Female

DRUGS (6)
  1. PREDNISOLONE [Suspect]
     Active Substance: PREDNISOLONE
     Indication: Acquired haemophilia
     Dosage: 1 MG/KG DAILY;
     Route: 065
  2. PREDNISOLONE [Suspect]
     Active Substance: PREDNISOLONE
     Dosage: 3 MILLIGRAM DAILY;
     Route: 065
  3. CYCLOPHOSPHAMIDE [Suspect]
     Active Substance: CYCLOPHOSPHAMIDE
     Indication: Acquired haemophilia
     Dosage: 440 MG/BODY PULSE THERAPY
     Route: 065
  4. Activated prothrombin complex concentrate [Concomitant]
     Indication: Haemostasis
     Route: 065
  5. Recombinant activated factor VII [Concomitant]
     Indication: Haemostasis
     Route: 065
  6. SULFAMETHOXAZOLE\TRIMETHOPRIM [Concomitant]
     Active Substance: SULFAMETHOXAZOLE\TRIMETHOPRIM
     Indication: Antibiotic prophylaxis
     Route: 065

REACTIONS (4)
  - Staphylococcal infection [Fatal]
  - Staphylococcal sepsis [Fatal]
  - Urinary tract infection staphylococcal [Fatal]
  - Cystitis haemorrhagic [Recovered/Resolved]
